FAERS Safety Report 6613870-3 (Version None)
Quarter: 2010Q1

REPORT INFORMATION
  Report Type: 
  Country: None (occurrence: None)
  Receive Date: 20100304
  Receipt Date: 20100223
  Transmission Date: 20100710
  Serious: Yes (Other)
  Sender: FDA-Public Use
  Company Number: A0841671A

PATIENT
  Age: 62 Year
  Sex: Female

DRUGS (15)
  1. PROMACTA [Suspect]
     Indication: IDIOPATHIC THROMBOCYTOPENIC PURPURA
     Dosage: 25MG PER DAY
     Route: 048
     Dates: start: 20090820, end: 20091104
  2. CORTICOSTEROIDS [Concomitant]
     Indication: IDIOPATHIC THROMBOCYTOPENIC PURPURA
     Dates: start: 20090813
  3. LYRICA [Concomitant]
  4. POTASSIUM CHLORIDE [Concomitant]
  5. LORCET-HD [Concomitant]
  6. COMPAZINE [Concomitant]
  7. NORVASC [Concomitant]
  8. MITOMYCIN [Concomitant]
  9. GEMZAR [Concomitant]
  10. AVASTIN (SIMVASTATIN) [Concomitant]
  11. ZOMETA [Concomitant]
  12. K-DUR [Concomitant]
  13. ZYRTEC [Concomitant]
  14. PROTONIX [Concomitant]
  15. PHENERGAN HCL [Concomitant]

REACTIONS (5)
  - CONDITION AGGRAVATED [None]
  - DRUG INEFFECTIVE [None]
  - HAEMATOLOGICAL MALIGNANCY [None]
  - HEPATIC ENZYME INCREASED [None]
  - METASTASES TO LIVER [None]
